FAERS Safety Report 16720631 (Version 1)
Quarter: 2019Q3

REPORT INFORMATION
  Report Type: Spontaneous
  Country: US (occurrence: US)
  Receive Date: 20190702
  Receipt Date: 20190702
  Transmission Date: 20191005
  Serious: Yes (Hospitalization)
  Sender: FDA-Public Use
  Company Number: None

PATIENT
  Age: 65 Year
  Sex: Male
  Weight: 30.16 kg

DRUGS (1)
  1. VITAMIN D3 [Suspect]
     Active Substance: CHOLECALCIFEROL
     Indication: VITAMIN D DEFICIENCY
     Route: 048

REACTIONS (13)
  - Packed red blood cell transfusion [None]
  - Urine abnormality [None]
  - White blood cell count decreased [None]
  - Protein urine present [None]
  - Lymphadenopathy mediastinal [None]
  - Pyrexia [None]
  - Mental status changes [None]
  - Platelet count decreased [None]
  - Anal incontinence [None]
  - Neutropenia [None]
  - Lymphocyte count decreased [None]
  - Pulmonary mass [None]
  - Pulmonary calcification [None]

NARRATIVE: CASE EVENT DATE: 20190701
